FAERS Safety Report 5202459-9 (Version None)
Quarter: 2006Q4

REPORT INFORMATION
  Report Type: 
  Country: None (occurrence: None)
  Receive Date: 20061010
  Receipt Date: 20050912
  Transmission Date: 20070319
  Serious: Yes (Life-Threatening)
  Sender: FDA-Public Use
  Company Number: 2005P1000549

PATIENT
  Age: 40 Year
  Sex: Female
  Weight: 61 kg

DRUGS (7)
  1. RETEPLASE (RETEPLASE) [Suspect]
     Indication: ACUTE MYOCARDIAL INFARCTION
     Dosage: IV
     Route: 042
     Dates: start: 20050613, end: 20050613
  2. ABCIXIMAB (ABCIXIMAB) [Suspect]
     Indication: ACUTE MYOCARDIAL INFARCTION
     Dosage: IV
     Route: 042
     Dates: start: 20050613
  3. HEPARIN [Concomitant]
  4. GLYCERYL TRINITRATE [Concomitant]
  5. ADENOSINE [Concomitant]
  6. ASPIRIN [Concomitant]
  7. PETHIDINE [Concomitant]

REACTIONS (1)
  - VENTRICULAR FIBRILLATION [None]
